FAERS Safety Report 10068014 (Version 2)
Quarter: 2014Q2

REPORT INFORMATION
  Report Type: Report from Study
  Country: JP (occurrence: JP)
  Receive Date: 20140409
  Receipt Date: 20140409
  Transmission Date: 20141212
  Serious: Yes (Other)
  Sender: FDA-Public Use
  Company Number: JP-CUBIST PHARMACEUTICAL, INC.-2014CBST000167

PATIENT
  Sex: 0

DRUGS (5)
  1. CUBICIN [Suspect]
     Indication: STAPHYLOCOCCAL SEPSIS
     Dosage: 5 MG/KG, ONCE DAILY
     Route: 041
     Dates: start: 20140107, end: 20140110
  2. CUBICIN [Suspect]
     Indication: OFF LABEL USE
  3. ELASPOL [Concomitant]
     Indication: ACUTE RESPIRATORY DISTRESS SYNDROME
     Dosage: 300 MG, ONCE DAILY
     Route: 042
     Dates: start: 20140110
  4. CHIECOOL [Concomitant]
     Indication: STAPHYLOCOCCAL SEPSIS
     Dosage: 0.5 G, TID
     Route: 042
     Dates: start: 20140110
  5. ZOSYN [Concomitant]
     Indication: STAPHYLOCOCCAL SEPSIS
     Dosage: 4.5 G, TID
     Route: 042
     Dates: start: 20140106, end: 20140109

REACTIONS (2)
  - Gangrene [None]
  - Drug ineffective for unapproved indication [Unknown]
